FAERS Safety Report 22539676 (Version 1)
Quarter: 2023Q2

REPORT INFORMATION
  Report Type: Report from Study
  Country: US (occurrence: US)
  Receive Date: 20230609
  Receipt Date: 20230609
  Transmission Date: 20230722
  Serious: Yes (Hospitalization, Other)
  Sender: FDA-Public Use
  Company Number: US-002147023-NVSC2023US128051

PATIENT
  Age: 44 Year
  Sex: Male

DRUGS (1)
  1. KESIMPTA [Suspect]
     Active Substance: OFATUMUMAB
     Indication: Multiple sclerosis
     Dosage: UNK
     Route: 065

REACTIONS (6)
  - Multiple sclerosis relapse [Unknown]
  - Movement disorder [Unknown]
  - Muscular weakness [Unknown]
  - Dry skin [Unknown]
  - Erythema [Unknown]
  - Fall [Unknown]

NARRATIVE: CASE EVENT DATE: 20221001
